FAERS Safety Report 11720631 (Version 3)
Quarter: 2016Q1

REPORT INFORMATION
  Report Type: Spontaneous
  Country: US (occurrence: US)
  Receive Date: 20151110
  Receipt Date: 20160316
  Transmission Date: 20160525
  Serious: Yes (Death, Hospitalization, Other)
  Sender: FDA-Public Use
  Company Number: US-SA-2015SA177588

PATIENT
  Age: 71 Year
  Sex: Male
  Weight: 81 kg

DRUGS (21)
  1. CYCLOSPORINE. [Concomitant]
     Active Substance: CYCLOSPORINE
     Dosage: STRENGTH:  0.05 %
  2. GUAIFENESIN. [Concomitant]
     Active Substance: GUAIFENESIN
  3. OMEGA 3 [Concomitant]
     Active Substance: OMEGA-3 FATTY ACIDS
     Dosage: DOSE: 300-1000 MG
  4. CALCIUM/COLECALCIFEROL [Concomitant]
  5. ATIVAN [Concomitant]
     Active Substance: LORAZEPAM
  6. FLOMAX [Concomitant]
     Active Substance: TAMSULOSIN HYDROCHLORIDE
  7. LASIX [Suspect]
     Active Substance: FUROSEMIDE
     Route: 048
  8. VITAMIN B12 [Concomitant]
     Active Substance: CYANOCOBALAMIN
  9. DELTASONE [Concomitant]
     Active Substance: PREDNISONE
  10. ZANTAC [Concomitant]
     Active Substance: RANITIDINE HYDROCHLORIDE
  11. ZOVIRAX [Concomitant]
     Active Substance: ACYCLOVIR
  12. ASP2215 [Suspect]
     Active Substance: GILTERITINIB
     Indication: ACUTE MYELOID LEUKAEMIA
     Route: 048
     Dates: start: 20150213, end: 20150511
  13. CIPRO [Concomitant]
     Active Substance: CIPROFLOXACIN HYDROCHLORIDE
  14. TOPROL XL [Concomitant]
     Active Substance: METOPROLOL SUCCINATE
  15. AMBIEN [Concomitant]
     Active Substance: ZOLPIDEM TARTRATE
  16. FLUCONAZOLE. [Concomitant]
     Active Substance: FLUCONAZOLE
  17. ZYRTEC [Concomitant]
     Active Substance: CETIRIZINE HYDROCHLORIDE
  18. SODIUM FLUORIDE. [Concomitant]
     Active Substance: SODIUM FLUORIDE
  19. KLOR-CON [Concomitant]
     Active Substance: POTASSIUM CHLORIDE
  20. KENALOG [Concomitant]
     Active Substance: TRIAMCINOLONE ACETONIDE
     Dosage: STRENGTH:  0.1 %
  21. AUGMENTIN [Concomitant]
     Active Substance: AMOXICILLIN\CLAVULANATE POTASSIUM
     Dosage: DOSE: 875/125 MG
     Dates: start: 20150330

REACTIONS (3)
  - Respiratory failure [Not Recovered/Not Resolved]
  - Acute myeloid leukaemia [Fatal]
  - Dehydration [Not Recovered/Not Resolved]

NARRATIVE: CASE EVENT DATE: 20150403
